FAERS Safety Report 9485866 (Version 1)
Quarter: 2013Q3

REPORT INFORMATION
  Report Type: Spontaneous
  Country: US (occurrence: None)
  Receive Date: 20130827
  Receipt Date: 20130827
  Transmission Date: 20140515
  Serious: Yes (Hospitalization)
  Sender: FDA-Public Use
  Company Number: None

PATIENT
  Age: 68 Year
  Sex: Male

DRUGS (1)
  1. PROPOFOL [Suspect]
     Indication: ANAESTHESIA
     Dosage: QS  ONCE  IV
     Route: 042
     Dates: start: 20111031, end: 20111031

REACTIONS (5)
  - Flatulence [None]
  - Procedural complication [None]
  - Swollen tongue [None]
  - Lip swelling [None]
  - Speech disorder [None]
